FAERS Safety Report 24616486 (Version 1)
Quarter: 2024Q4

REPORT INFORMATION
  Report Type: Spontaneous
  Country: JP (occurrence: JP)
  Receive Date: 20241114
  Receipt Date: 20241114
  Transmission Date: 20250115
  Serious: Yes (Other)
  Sender: NOVO NORDISK
  Company Number: JP-NOVOPROD-1313574

PATIENT
  Age: 84 Year
  Sex: Female

DRUGS (2)
  1. TRESIBA [Suspect]
     Active Substance: INSULIN DEGLUDEC
     Indication: Diabetes mellitus
     Dosage: SATURDAYS AND SUNDAYS PERFORM INJECTION BEFORE SUPPER
     Route: 058
     Dates: start: 202410
  2. TRESIBA [Suspect]
     Active Substance: INSULIN DEGLUDEC
     Dosage: QD
     Route: 058

REACTIONS (10)
  - Suicidal ideation [Unknown]
  - Hyperphagia [Unknown]
  - Affect lability [Unknown]
  - Irregular sleep wake rhythm disorder [Unknown]
  - Confusional state [Unknown]
  - Impaired insulin secretion [Unknown]
  - Increased appetite [Unknown]
  - Aggression [Unknown]
  - Injection site pain [Unknown]
  - Product storage error [Unknown]

NARRATIVE: CASE EVENT DATE: 20241001
